FAERS Safety Report 25605110 (Version 1)
Quarter: 2025Q3

REPORT INFORMATION
  Report Type: Spontaneous
  Country: US (occurrence: US)
  Receive Date: 20250725
  Receipt Date: 20250725
  Transmission Date: 20251021
  Serious: No
  Sender: VERICEL
  Company Number: US-VERICEL-US-VCEL-25-000148

PATIENT
  Sex: Male

DRUGS (2)
  1. BROMELAINS [Suspect]
     Active Substance: BROMELAINS
     Indication: Eschar
     Route: 061
     Dates: start: 20250521, end: 20250521
  2. NOREPINEPHRINE [Concomitant]
     Active Substance: NOREPINEPHRINE
     Indication: Product used for unknown indication

REACTIONS (2)
  - Haemorrhage [Recovered/Resolved]
  - Off label use [Unknown]

NARRATIVE: CASE EVENT DATE: 20250521
